FAERS Safety Report 7158754-X (Version None)
Quarter: 2010Q4

REPORT INFORMATION
  Report Type: 
  Country: None (occurrence: None)
  Receive Date: 20101214
  Receipt Date: 20101208
  Transmission Date: 20110411
  Serious: Yes (Death, Life-Threatening)
  Sender: FDA-Public Use
  Company Number: GB-PFIZER INC-2010167697

PATIENT
  Age: 44 Year
  Sex: Male
  Weight: 71 kg

DRUGS (6)
  1. SUNITINIB MALATE [Suspect]
     Indication: RENAL CANCER RECURRENT
     Dosage: UNK
     Route: 048
     Dates: start: 20100611, end: 20100711
  2. DOMPERIDONE [Concomitant]
  3. DURAGESIC-100 [Concomitant]
  4. LOPERAMIDE HYDROCHLORIDE [Concomitant]
  5. MEGESTROL ACETATE [Concomitant]
  6. OMEPRAZOLE [Concomitant]

REACTIONS (8)
  - ANAEMIA [None]
  - DECREASED APPETITE [None]
  - DIARRHOEA [None]
  - DISEASE PROGRESSION [None]
  - GASTROINTESTINAL PERFORATION [None]
  - PYREXIA [None]
  - RENAL CELL CARCINOMA [None]
  - VOMITING [None]
